FAERS Safety Report 16093154 (Version 1)
Quarter: 2019Q1

REPORT INFORMATION
  Report Type: Spontaneous
  Country: US (occurrence: US)
  Receive Date: 20190320
  Receipt Date: 20190320
  Transmission Date: 20190418
  Serious: No
  Sender: FDA-Public Use
  Company Number: US-APOTEX-2018AP019072

PATIENT
  Sex: Female

DRUGS (4)
  1. MODAFINIL TABLETS USP [Suspect]
     Active Substance: MODAFINIL
     Indication: POST-TRAUMATIC STRESS DISORDER
  2. MODAFINIL TABLETS USP [Suspect]
     Active Substance: MODAFINIL
     Indication: DEPRESSION
  3. MODAFINIL TABLETS USP [Suspect]
     Active Substance: MODAFINIL
     Indication: SOMNOLENCE
     Dosage: UNK
     Route: 065
  4. MODAFINIL TABLETS USP [Suspect]
     Active Substance: MODAFINIL
     Indication: ANXIETY

REACTIONS (6)
  - Product physical issue [Unknown]
  - Off label use [Unknown]
  - Therapeutic response unexpected [Unknown]
  - Product solubility abnormal [Unknown]
  - Product substitution issue [Unknown]
  - Drug ineffective [Unknown]
